FAERS Safety Report 21254982 (Version 1)
Quarter: 2022Q3

REPORT INFORMATION
  Report Type: Spontaneous
  Country: US (occurrence: US)
  Receive Date: 20220825
  Receipt Date: 20220825
  Transmission Date: 20221026
  Serious: No
  Sender: FDA-Public Use
  Company Number: US-MYLANLABS-2022M1086913

PATIENT
  Age: 26 Year
  Sex: Female
  Weight: 105.69 kg

DRUGS (11)
  1. SEMGLEE (INSULIN GLARGINE-YFGN) [Suspect]
     Active Substance: INSULIN GLARGINE-YFGN
     Indication: Type 2 diabetes mellitus
     Dosage: 32 INTERNATIONAL UNIT, QD (BEFORE BEDTIME)
     Route: 058
     Dates: start: 202205
  2. ACETAZOLAMIDE [Concomitant]
     Active Substance: ACETAZOLAMIDE
     Indication: Idiopathic intracranial hypertension
     Dosage: 2 DOSAGE FORM, BID
     Route: 065
     Dates: start: 202208
  3. ANAFRANIL [Concomitant]
     Active Substance: CLOMIPRAMINE HYDROCHLORIDE
     Indication: Obsessive-compulsive disorder
     Dosage: UNK
     Route: 065
     Dates: start: 202208
  4. LATUDA [Concomitant]
     Active Substance: LURASIDONE HYDROCHLORIDE
     Indication: Bipolar disorder
     Dosage: 2 DOSAGE FORM, HS
     Route: 065
     Dates: start: 201809
  5. METOPROLOL [Concomitant]
     Active Substance: METOPROLOL
     Indication: Heart rate increased
     Dosage: 1 DOSAGE FORM, HS
     Route: 065
     Dates: start: 2022
  6. PRAZOSIN [Concomitant]
     Active Substance: PRAZOSIN
     Indication: Nightmare
     Dosage: 2 5 MG TABLETS AND 1 2 MG TABLET, HS
     Route: 065
     Dates: start: 2020
  7. VITAMIN B6 [Concomitant]
     Active Substance: PYRIDOXINE HYDROCHLORIDE
     Indication: Nausea
     Dosage: 1 DOSAGE FORM, HS
     Route: 065
     Dates: start: 202207
  8. VRAYLAR [Concomitant]
     Active Substance: CARIPRAZINE
     Indication: Bipolar disorder
     Dosage: 1 DOSAGE FORM, HS
     Route: 065
     Dates: start: 2020
  9. ZOFRAN [Concomitant]
     Active Substance: ONDANSETRON HYDROCHLORIDE
     Indication: Nausea
     Dosage: UNK, PRN
     Route: 065
     Dates: start: 2018
  10. PERCOCET [Concomitant]
     Active Substance: ACETAMINOPHEN\OXYCODONE HYDROCHLORIDE
     Indication: Headache
     Dosage: UNK UNK, PRN
     Route: 065
     Dates: start: 202207
  11. PROCHLORPERAZINE [Concomitant]
     Active Substance: PROCHLORPERAZINE
     Indication: Nausea
     Dosage: UNK UNK, PRN
     Route: 065
     Dates: start: 202208

REACTIONS (4)
  - Device breakage [Unknown]
  - Device leakage [Unknown]
  - Product dose omission issue [Unknown]
  - Maternal exposure during pregnancy [Unknown]

NARRATIVE: CASE EVENT DATE: 20220701
